FAERS Safety Report 9454976 (Version 1)
Quarter: 2013Q3

REPORT INFORMATION
  Report Type: Report from Study
  Country: US (occurrence: US)
  Receive Date: 20130813
  Receipt Date: 20130813
  Transmission Date: 20140515
  Serious: Yes (Hospitalization)
  Sender: FDA-Public Use
  Company Number: US-ROCHE-1260568

PATIENT
  Age: 55 Year
  Sex: Female

DRUGS (1)
  1. ACTIVASE [Suspect]
     Indication: CEREBRAL THROMBOSIS
     Dosage: TOTAL DOSE: 66 MG
     Route: 040
     Dates: start: 20130528, end: 20130528

REACTIONS (5)
  - NIH stroke scale score increased [Unknown]
  - Hypoaesthesia [Unknown]
  - Hemianopia [Unknown]
  - Muscular weakness [Unknown]
  - Ataxia [Unknown]
